FAERS Safety Report 9343251 (Version 1)
Quarter: 2013Q2

REPORT INFORMATION
  Report Type: Spontaneous
  Country: CN (occurrence: CN)
  Receive Date: 20130611
  Receipt Date: 20130611
  Transmission Date: 20140414
  Serious: Yes (Other)
  Sender: FDA-Public Use
  Company Number: CN-BAXTER-2013BAX020891

PATIENT
  Age: 40 Year
  Sex: Female

DRUGS (2)
  1. PERITONEAL DIALYSIS SOLUTION (LACTATE- G 1.5%) [Suspect]
     Indication: AZOTAEMIA
     Route: 033
     Dates: start: 20121008, end: 20121008
  2. PERITONEAL DIALYSIS SOLUTION (LACTATE- G2.5%) [Suspect]
     Indication: AZOTAEMIA
     Route: 033
     Dates: start: 20121008, end: 20121008

REACTIONS (2)
  - Oedema peripheral [Recovering/Resolving]
  - Blood pressure increased [Recovering/Resolving]
